FAERS Safety Report 7491240-6 (Version None)
Quarter: 2011Q2

REPORT INFORMATION
  Report Type: 
  Country: None (occurrence: None)
  Receive Date: 20110518
  Receipt Date: 20110518
  Transmission Date: 20111010
  Serious: Yes (Life-Threatening, Hospitalization)
  Sender: FDA-Public Use
  Company Number: None

PATIENT
  Sex: Female
  Weight: 76.4 kg

DRUGS (1)
  1. NUVARING [Suspect]
     Indication: CONTRACEPTION
     Dates: start: 20100806, end: 20110512

REACTIONS (4)
  - PULMONARY EMBOLISM [None]
  - HAEMODYNAMIC INSTABILITY [None]
  - RIGHT VENTRICULAR FAILURE [None]
  - ARRHYTHMIA [None]
